FAERS Safety Report 7406832-X (Version None)
Quarter: 2011Q2

REPORT INFORMATION
  Report Type: 
  Country: None (occurrence: None)
  Receive Date: 20110406
  Receipt Date: 20110406
  Transmission Date: 20111010
  Serious: Yes (Hospitalization)
  Sender: FDA-Public Use
  Company Number: None

PATIENT
  Sex: Female
  Weight: 82.3 kg

DRUGS (4)
  1. CYCLOPHOSPHAMIDE [Suspect]
     Dosage: 1160 MG
     Dates: end: 20110322
  2. PACLITAXEL [Suspect]
     Dosage: 1800 MG
     Dates: end: 20110308
  3. DOXORUBICIN HCL [Suspect]
     Dosage: 116 MG
     Dates: end: 20110322
  4. PEGFILGRASTIM (NEULASTA) [Suspect]
     Dosage: 6 MG
     Dates: end: 20110323

REACTIONS (4)
  - ATELECTASIS [None]
  - PLEURAL EFFUSION [None]
  - PULMONARY FIBROSIS [None]
  - PNEUMONIA [None]
